FAERS Safety Report 19818188 (Version 2)
Quarter: 2021Q3

REPORT INFORMATION
  Report Type: Spontaneous
  Country: PK (occurrence: PK)
  Receive Date: 20210911
  Receipt Date: 20210919
  Transmission Date: 20211014
  Serious: Yes (Death, Hospitalization)
  Sender: FDA-Public Use
  Company Number: PK-ROCHE-2906734

PATIENT
  Age: 54 Year
  Sex: Female

DRUGS (2)
  1. AVASTIN [Suspect]
     Active Substance: BEVACIZUMAB
     Indication: HEPATOCELLULAR CARCINOMA
     Route: 042
     Dates: start: 20210812, end: 20210902
  2. TECENTRIQ [Suspect]
     Active Substance: ATEZOLIZUMAB
     Indication: HEPATOCELLULAR CARCINOMA
     Route: 042
     Dates: start: 20210812, end: 20210902

REACTIONS (6)
  - Death [Fatal]
  - Speech disorder [Unknown]
  - Asthenia [Unknown]
  - Loss of consciousness [Unknown]
  - Dyspnoea [Unknown]
  - Jaundice [Unknown]

NARRATIVE: CASE EVENT DATE: 20210909
